FAERS Safety Report 17199057 (Version 1)
Quarter: 2019Q4

REPORT INFORMATION
  Report Type: Spontaneous
  Country: SE (occurrence: SE)
  Receive Date: 20191225
  Receipt Date: 20191225
  Transmission Date: 20200122
  Serious: Yes (Hospitalization)
  Sender: FDA-Public Use
  Company Number: SE-BAUSCH-BL-2019-065900

PATIENT
  Sex: Female

DRUGS (3)
  1. THERALEN [Suspect]
     Active Substance: TRIMEPRAZINE
     Indication: PRODUCT USED FOR UNKNOWN INDICATION
     Dosage: ONE TOTAL
     Route: 048
     Dates: start: 20190112, end: 20190112
  2. VENLAFAXINE [Suspect]
     Active Substance: VENLAFAXINE HYDROCHLORIDE
     Indication: PRODUCT USED FOR UNKNOWN INDICATION
     Dosage: 4 UNITS (1 TOTAL)
     Route: 048
     Dates: start: 20190112, end: 20190112
  3. PROPAVAN [Suspect]
     Active Substance: PROPIOMAZINE
     Indication: PRODUCT USED FOR UNKNOWN INDICATION
     Dosage: 50 UNITS (ONE TOTAL)
     Route: 048
     Dates: start: 20190112, end: 20190112

REACTIONS (4)
  - Anxiety [Unknown]
  - Intentional overdose [Unknown]
  - Suicide attempt [Unknown]
  - Intentional self-injury [Unknown]

NARRATIVE: CASE EVENT DATE: 20190112
